FAERS Safety Report 14655678 (Version 1)
Quarter: 2018Q1

REPORT INFORMATION
  Report Type: Spontaneous
  Country: DE (occurrence: DE)
  Receive Date: 20180319
  Receipt Date: 20180319
  Transmission Date: 20180509
  Serious: Yes (Other)
  Sender: FDA-Public Use
  Company Number: DE-TEVA-2018-DE-868612

PATIENT
  Age: 66 Year
  Sex: Male

DRUGS (2)
  1. ENALAPRIL ABZ 20 MG TABLETTEN [Suspect]
     Active Substance: ENALAPRIL
     Indication: HYPERTENSION
     Dosage: 20 MILLIGRAM DAILY; 1 DOSAGE FORM IS ONE TABLET
     Route: 048
  2. TAMSULOSIN HEUMANN [Interacting]
     Active Substance: TAMSULOSIN
     Indication: PROSTATIC DISORDER

REACTIONS (3)
  - Blood glucose increased [Unknown]
  - Diabetes mellitus [Unknown]
  - Drug interaction [Unknown]

NARRATIVE: CASE EVENT DATE: 20180306
